FAERS Safety Report 24875824 (Version 1)
Quarter: 2025Q1

REPORT INFORMATION
  Report Type: Spontaneous
  Country: US (occurrence: US)
  Receive Date: 20250122
  Receipt Date: 20250122
  Transmission Date: 20250408
  Serious: No
  Sender: BRISTOL-MYERS SQUIBB COMPANY
  Company Number: US-BRISTOL-MYERS SQUIBB COMPANY-2025-009055

PATIENT
  Age: 28 Year
  Sex: Male
  Weight: 102.06 kg

DRUGS (1)
  1. COBENFY [Suspect]
     Active Substance: TROSPIUM CHLORIDE\XANOMELINE
     Indication: Schizoaffective disorder bipolar type
     Dosage: FREQ : ON CAPSULE IN MORNING AND ONE CAPSULE IN THE EVENING.
     Route: 048
     Dates: start: 202412

REACTIONS (5)
  - Insomnia [Unknown]
  - Decreased appetite [Unknown]
  - Nervousness [Unknown]
  - Tremor [Unknown]
  - Off label use [Unknown]
